FAERS Safety Report 5762995-3 (Version None)
Quarter: 2008Q2

REPORT INFORMATION
  Report Type: 
  Country: None (occurrence: None)
  Receive Date: 20080602
  Receipt Date: 20080321
  Transmission Date: 20081010
  Serious: No
  Sender: FDA-Public Use
  Company Number: PHEH2008US02743

PATIENT
  Sex: Female

DRUGS (2)
  1. TEKTURNA [Suspect]
     Indication: HYPERTENSION
     Dosage: 150 MG, QD
     Dates: start: 20070601
  2. FOSAMAX [Concomitant]

REACTIONS (1)
  - HYPERTENSION [None]
